FAERS Safety Report 15706065 (Version 1)
Quarter: 2018Q4

REPORT INFORMATION
  Report Type: Report from Study
  Country: PR (occurrence: US)
  Receive Date: 20181210
  Receipt Date: 20181210
  Transmission Date: 20190205
  Serious: Yes (Disabling)
  Sender: FDA-Public Use
  Company Number: PR-BRISTOL-MYERS SQUIBB COMPANY-BMS-2018-114581

PATIENT
  Sex: Female
  Weight: 61.2 kg

DRUGS (2)
  1. APIXABAN [Suspect]
     Active Substance: APIXABAN
     Indication: LUNG DISORDER
     Dosage: 5 MG, BID
     Route: 048
     Dates: start: 201808
  2. LYRICA [Concomitant]
     Active Substance: PREGABALIN
     Indication: PRODUCT USED FOR UNKNOWN INDICATION
     Dosage: 75 MG, BID
     Route: 065

REACTIONS (4)
  - Product use in unapproved indication [Unknown]
  - Weight decreased [Unknown]
  - Depression [Unknown]
  - Gait disturbance [Unknown]
